FAERS Safety Report 19990949 (Version 1)
Quarter: 2021Q4

REPORT INFORMATION
  Report Type: Other
  Country: DE (occurrence: DE)
  Receive Date: 20211025
  Receipt Date: 20211025
  Transmission Date: 20220303
  Serious: Yes (Hospitalization, Other)
  Sender: FDA-Public Use
  Company Number: DE-EYWA PHARMA INC.-2120946

PATIENT
  Age: 72 Year
  Sex: Female

DRUGS (5)
  1. ACETAZOLAMIDE [Suspect]
     Active Substance: ACETAZOLAMIDE
     Indication: Intraocular pressure increased
     Route: 048
  2. MANNITOL [Concomitant]
     Active Substance: MANNITOL
     Route: 042
  3. TIMOLOL [Concomitant]
     Active Substance: TIMOLOL
     Route: 042
  4. APRACLONIDINE [Concomitant]
     Active Substance: APRACLONIDINE HYDROCHLORIDE
     Route: 042
  5. PREDNISOLONE [Concomitant]
     Active Substance: PREDNISOLONE
     Route: 042

REACTIONS (2)
  - Choroidal effusion [Recovering/Resolving]
  - Glaucoma [Recovering/Resolving]
